FAERS Safety Report 9044504 (Version 3)
Quarter: 2013Q1

REPORT INFORMATION
  Report Type: Report from Study
  Country: JP (occurrence: JP)
  Receive Date: 20130130
  Receipt Date: 20130225
  Transmission Date: 20140127
  Serious: Yes (Death)
  Sender: FDA-Public Use
  Company Number: JP-OTSUKA-JP-2013-10174

PATIENT
  Age: 100 Year
  Sex: Male
  Weight: 45 kg

DRUGS (17)
  1. SAMSCA [Suspect]
     Indication: FLUID RETENTION
     Dosage: 3.75 MG MILLIGRAM(S), QAM
     Route: 048
     Dates: start: 20130110, end: 20130111
  2. SAMSCA [Suspect]
     Dosage: 7.5 MG MILLIGRAM(S), QAM
     Route: 048
     Dates: start: 20130112, end: 20130115
  3. LASIX [Concomitant]
     Indication: CARDIAC FAILURE
     Dosage: 20 MG MILLIGRAM(S), DAILY DOSE
     Route: 048
     Dates: end: 20130109
  4. MAGNESIUM OXIDE [Concomitant]
     Dosage: 0.8 G GRAM(S), DAILY DOSE
     Route: 048
     Dates: end: 20130109
  5. MUCOSOLVAN [Concomitant]
     Dosage: 45 MG MILLIGRAM(S), DAILY DOSE
     Route: 048
     Dates: end: 20130109
  6. ZOSYN [Concomitant]
     Dosage: 9.0 G GRAM(S), DAILY DOSE
     Route: 042
     Dates: end: 20130112
  7. BISOLVON [Concomitant]
     Dosage: 8 MG MILLIGRAM(S), DAILY DOSE
     Route: 042
     Dates: end: 20130116
  8. NEOPHYLLIN [Concomitant]
     Dosage: 250 MG MILLIGRAM(S), DAILY DOSE
     Route: 042
     Dates: end: 20130116
  9. POTACOL-R [Concomitant]
     Dosage: 500 ML MILLILITRE(S), DAILY DOSE
     Route: 041
     Dates: start: 20130109, end: 20130109
  10. PURSENNID [Concomitant]
     Dosage: 12 MG MILLIGRAM(S), DAILY DOSE
     Route: 048
     Dates: start: 20130110, end: 20130115
  11. LOWPSTON [Concomitant]
     Indication: CARDIAC FAILURE
     Dosage: 20 MG MILLIGRAM(S), DAILY DOSE
     Route: 042
     Dates: start: 20130109, end: 20130116
  12. PLETAAL [Concomitant]
     Dosage: 50 MG MILLIGRAM(S), DAILY DOSE
     Route: 048
     Dates: start: 20130110, end: 20130116
  13. SOLITA-T3 [Concomitant]
     Dosage: 500 ML MILLILITRE(S), DAILY DOSE
     Route: 041
     Dates: start: 20130110, end: 20130116
  14. PARESAFE [Concomitant]
     Dosage: 500 ML MILLILITRE(S), DAILY DOSE
     Route: 041
     Dates: start: 20130110, end: 20130116
  15. DEXTROSE WATER [Concomitant]
     Dosage: 500 ML MILLILITRE(S), DAILY DOSE
     Route: 042
     Dates: start: 20130110, end: 20130116
  16. ASPARA K [Concomitant]
     Indication: HYPOKALAEMIA
     Dosage: 1A, DAILY DOSE
     Route: 041
     Dates: start: 20130110, end: 20130116
  17. CRAVIT [Concomitant]
     Dosage: 250 MG MILLIGRAM(S), DAILY DOSE
     Route: 041
     Dates: start: 20130112, end: 20130116

REACTIONS (3)
  - Pneumonia [Fatal]
  - Hypokalaemia [Not Recovered/Not Resolved]
  - Blood creatinine increased [Not Recovered/Not Resolved]
